FAERS Safety Report 4688119-1 (Version None)
Quarter: 2005Q2

REPORT INFORMATION
  Report Type: 
  Country: None (occurrence: None)
  Receive Date: 20050609
  Receipt Date: 20050525
  Transmission Date: 20051028
  Serious: Yes (Hospitalization)
  Sender: FDA-Public Use
  Company Number: 2005BI003178

PATIENT
  Age: 70 Year
  Sex: Female
  Weight: 56.6996 kg

DRUGS (7)
  1. AVONEX [Suspect]
     Indication: MULTIPLE SCLEROSIS
     Dosage: 30 UG;QW; IM
     Route: 030
     Dates: start: 20020101, end: 20030801
  2. AVONEX [Suspect]
     Indication: MULTIPLE SCLEROSIS
     Dosage: 30 UG;QW; IM
     Route: 030
     Dates: start: 20030801
  3. SYNTHROID [Concomitant]
  4. ASPIRIN [Concomitant]
  5. ZOLOFT [Concomitant]
  6. CALCIUM SUPPLEMENT [Concomitant]
  7. FOLTX [Concomitant]

REACTIONS (6)
  - BACK PAIN [None]
  - DIZZINESS [None]
  - ESSENTIAL HYPERTENSION [None]
  - FALL [None]
  - HYPOTENSION [None]
  - INFLUENZA LIKE ILLNESS [None]
